FAERS Safety Report 5110000-4 (Version None)
Quarter: 2006Q3

REPORT INFORMATION
  Report Type: 
  Country: None (occurrence: None)
  Receive Date: 20060921
  Receipt Date: 20060825
  Transmission Date: 20061208
  Serious: Yes (Hospitalization)
  Sender: FDA-Public Use
  Company Number: HQWYE040228AUG06

PATIENT
  Sex: Female

DRUGS (13)
  1. ENBREL [Suspect]
     Indication: RHEUMATOID ARTHRITIS
     Route: 058
     Dates: start: 20060119, end: 20060714
  2. ALFACALCIDOL [Concomitant]
  3. BENET [Concomitant]
  4. SUNRYTHM [Concomitant]
  5. PURSENNID [Concomitant]
  6. ALPROSTADIL [Concomitant]
  7. TAKEPRON [Concomitant]
  8. VOLTAREN [Concomitant]
     Indication: RHEUMATOID ARTHRITIS
  9. ADONA [Concomitant]
  10. CINAL [Concomitant]
  11. GENTACIN [Concomitant]
  12. PREDONINE [Concomitant]
     Indication: RHEUMATOID ARTHRITIS
  13. DEPAS [Concomitant]

REACTIONS (3)
  - CHOLECYSTITIS ACUTE [None]
  - PYELONEPHRITIS ACUTE [None]
  - UPPER RESPIRATORY TRACT INFLAMMATION [None]
